FAERS Safety Report 24222831 (Version 1)
Quarter: 2024Q3

REPORT INFORMATION
  Report Type: Spontaneous
  Country: GB (occurrence: GB)
  Receive Date: 20240819
  Receipt Date: 20240819
  Transmission Date: 20241016
  Serious: Yes (Hospitalization, Other)
  Sender: HIKMA
  Company Number: GB-ROCHE-3470896

PATIENT

DRUGS (27)
  1. ATEZOLIZUMAB [Suspect]
     Active Substance: ATEZOLIZUMAB
     Indication: Small cell lung cancer extensive stage
     Dosage: 1200 MILLIGRAM, 3W
     Route: 065
     Dates: start: 20230309
  2. ATEZOLIZUMAB [Suspect]
     Active Substance: ATEZOLIZUMAB
     Dosage: 1200 MILLIGRAM, 3W
     Route: 065
     Dates: start: 20231116
  3. CARBOPLATIN [Suspect]
     Active Substance: CARBOPLATIN
     Dosage: 500 MILLIGRAM, 3W
     Route: 065
     Dates: start: 20230518
  4. CARBOPLATIN [Suspect]
     Active Substance: CARBOPLATIN
     Indication: Small cell lung cancer extensive stage
     Dosage: 560 MILLIGRAM, 3W
     Route: 042
     Dates: start: 20230309
  5. ETOPOSIDE [Suspect]
     Active Substance: ETOPOSIDE
     Indication: Small cell lung cancer extensive stage
     Dosage: 180 MILLIGRAM
     Route: 065
     Dates: start: 20230309
  6. ETOPOSIDE [Suspect]
     Active Substance: ETOPOSIDE
     Dosage: 180 MILLIGRAM
     Route: 065
     Dates: start: 20230518
  7. ATORVASTATIN [Concomitant]
     Active Substance: ATORVASTATIN
     Indication: Hypertension
     Dosage: UNKNOWN
     Route: 065
     Dates: start: 20190125
  8. AUGMENTIN [Concomitant]
     Active Substance: AMOXICILLIN\CLAVULANATE POTASSIUM
     Indication: Product used for unknown indication
     Dosage: UNKNOWN
     Route: 065
  9. AVEENO [Concomitant]
     Active Substance: DIMETHICONE\HOMOSALATE\OCTINOXATE\OCTISALATE\TITANIUM DIOXIDE
     Indication: Rash
     Dosage: UNKNOWN
     Route: 065
     Dates: start: 20230801
  10. BECLOMETHASONE DIPROPIONATE [Concomitant]
     Active Substance: BECLOMETHASONE DIPROPIONATE
     Indication: Product used for unknown indication
     Dosage: UNKNOWN
     Route: 065
     Dates: start: 20240115
  11. CHLORHEXIDINE [Concomitant]
     Active Substance: CHLORHEXIDINE
     Indication: Mucosal inflammation
     Dosage: UNKNOWN
     Route: 065
     Dates: start: 20230331
  12. CLARITHROMYCIN [Concomitant]
     Active Substance: CLARITHROMYCIN
     Indication: Lower respiratory tract infection
     Dosage: UNKNOWN
     Route: 065
     Dates: start: 20240229, end: 20240305
  13. DOCUSATE [Concomitant]
     Active Substance: DOCUSATE
     Indication: Constipation
     Dosage: UNKNOWN
     Route: 065
     Dates: start: 20230301
  14. DOXYCYCLINE [Concomitant]
     Active Substance: DOXYCYCLINE\DOXYCYCLINE HYCLATE
     Indication: Lower respiratory tract infection
     Dosage: UNKNOWN
     Route: 065
     Dates: start: 20231109, end: 20231116
  15. DOXYCYCLINE [Concomitant]
     Active Substance: DOXYCYCLINE\DOXYCYCLINE HYCLATE
     Indication: Cough
  16. ISOTONIC [Concomitant]
     Indication: Product used for unknown indication
     Dosage: UNKNOWN
     Route: 065
     Dates: start: 20240115
  17. LANSOPRAZOLE [Concomitant]
     Active Substance: LANSOPRAZOLE
     Indication: Dyspepsia
     Dosage: UNKNOWN
     Route: 065
     Dates: start: 20230531
  18. POLYETHYLENE GLYCOL 3350\POTASSIUM CHLORIDE\SODIUM BICARBONATE\SODIUM [Concomitant]
     Active Substance: POLYETHYLENE GLYCOL 3350\POTASSIUM CHLORIDE\SODIUM BICARBONATE\SODIUM CHLORIDE
     Indication: Constipation
     Dosage: UNKNOWN
     Route: 065
     Dates: start: 20230518
  19. MICONAZOLE [Concomitant]
     Active Substance: MICONAZOLE\MICONAZOLE NITRATE
     Indication: Oral candidiasis
     Dosage: 20 MILLIGRAM, QD
     Route: 065
     Dates: start: 20231109, end: 20231114
  20. ACETAMINOPHEN [Concomitant]
     Active Substance: ACETAMINOPHEN
     Indication: Product used for unknown indication
     Dosage: UNKNOWN
     Route: 065
     Dates: start: 20230426
  21. PENICILLIN V [Concomitant]
     Active Substance: PENICILLIN V
     Indication: Lower respiratory tract infection
     Dosage: UNKNOWN
     Route: 065
     Dates: start: 20240115, end: 20240119
  22. PREDNISOLONE [Concomitant]
     Active Substance: PREDNISOLONE
     Indication: Lower respiratory tract infection
     Dosage: 300 MILLIGRAM, QD
     Route: 065
     Dates: start: 20240229, end: 20240305
  23. ALBUTEROL [Concomitant]
     Active Substance: ALBUTEROL
     Indication: Chronic obstructive pulmonary disease
     Dosage: UNKNOWN
     Route: 065
     Dates: start: 20151130
  24. ALBUTEROL [Concomitant]
     Active Substance: ALBUTEROL
     Dosage: UNKNOWN
     Route: 065
     Dates: start: 20240522
  25. SENNA [Concomitant]
     Active Substance: SENNA LEAF\SENNOSIDES\SENNOSIDES A AND B
     Indication: Constipation
     Dosage: UNKNOWN
     Route: 065
     Dates: start: 20230328
  26. SEA WATER [Concomitant]
     Active Substance: SEA WATER
     Indication: Product used for unknown indication
     Dosage: UNKNOWN
     Route: 065
     Dates: start: 20240115
  27. TRELEGY ELLIPTA [Concomitant]
     Active Substance: FLUTICASONE FUROATE\UMECLIDINIUM BROMIDE\VILANTEROL TRIFENATATE
     Indication: Chronic obstructive pulmonary disease
     Dosage: 1 INHALATION
     Route: 065
     Dates: start: 20160511

REACTIONS (4)
  - Pneumonia [Recovering/Resolving]
  - Balance disorder [Unknown]
  - Decreased appetite [Unknown]
  - Feeling of body temperature change [Unknown]

NARRATIVE: CASE EVENT DATE: 20231204
